FAERS Safety Report 9504850 (Version 1)
Quarter: 2013Q3

REPORT INFORMATION
  Report Type: Spontaneous
  Country: ES (occurrence: ES)
  Receive Date: 20130906
  Receipt Date: 20130906
  Transmission Date: 20140515
  Serious: Yes (Life-Threatening)
  Sender: FDA-Public Use
  Company Number: ALCN2013ES004506

PATIENT
  Sex: Female

DRUGS (8)
  1. VIGAMOX [Suspect]
     Indication: EYE INFECTION BACTERIAL
     Dosage: 1 GTT, TID
     Route: 047
     Dates: start: 20130808, end: 20130810
  2. ATORVASTATIN [Concomitant]
     Indication: DYSLIPIDAEMIA
     Dosage: 10 MG, QD
     Route: 048
     Dates: start: 20130804
  3. CIPRALEX                                /DEN/ [Concomitant]
     Indication: DEPRESSION
     Dosage: 15 MG, QD
     Route: 048
     Dates: start: 20130804
  4. TROMALYT [Concomitant]
     Indication: THROMBOSIS PROPHYLAXIS
     Dosage: 300 MG, QD
     Route: 048
  5. VALSARTAN + HIDROCLOROTIAZIDA [Concomitant]
     Indication: HYPERTENSION
     Dosage: 160 MG, QD
     Dates: start: 20130804
  6. VITAMIN D3 [Concomitant]
     Dosage: 12 GTT, QD
     Route: 065
     Dates: start: 20120425
  7. AMLODIPINE [Concomitant]
     Indication: HYPERTENSION
     Dosage: 5 MG, QD
     Route: 048
     Dates: start: 20120409
  8. DEPRAX [Concomitant]
     Indication: DEPRESSION
     Dosage: 100 MG, QD
     Route: 048
     Dates: start: 2011

REACTIONS (2)
  - Laryngospasm [Recovered/Resolved]
  - Choking [Recovered/Resolved]
